FAERS Safety Report 6855143-X (Version None)
Quarter: 2010Q3

REPORT INFORMATION
  Report Type: 
  Country: None (occurrence: None)
  Receive Date: 20100717
  Receipt Date: 20091216
  Transmission Date: 20110219
  Serious: No
  Sender: FDA-Public Use
  Company Number: US-PFIZER INC-2007104623

PATIENT
  Sex: Female
  Weight: 55.8 kg

DRUGS (4)
  1. CHANTIX [Suspect]
     Indication: SMOKING CESSATION THERAPY
     Dosage: 0.5 MG, 1X/DAY
     Route: 048
     Dates: start: 20070101
  2. XANAX [Concomitant]
     Indication: PANIC ATTACK
     Dosage: 1 MG, 1X/DAY
     Route: 048
  3. XANAX [Concomitant]
     Indication: SLEEP DISORDER
  4. VALIUM [Concomitant]
     Indication: ANXIETY
     Dosage: 0.5 MG, AS NEEDED

REACTIONS (5)
  - ABNORMAL DREAMS [None]
  - MALAISE [None]
  - NAUSEA [None]
  - THINKING ABNORMAL [None]
  - VOMITING [None]
